FAERS Safety Report 8162649-2 (Version None)
Quarter: 2012Q1

REPORT INFORMATION
  Report Type: 
  Country: None (occurrence: None)
  Receive Date: 20120224
  Receipt Date: 20120210
  Transmission Date: 20120608
  Serious: Yes (Hospitalization, Other)
  Sender: FDA-Public Use
  Company Number: GB-RANBAXY-2011R1-48844

PATIENT

DRUGS (5)
  1. AMITRIPTYLINE HCL [Suspect]
     Indication: MENTAL DISORDER
     Dosage: UNK
     Route: 048
  2. FOLIC ACID [Concomitant]
     Indication: PROPHYLAXIS OF NEURAL TUBE DEFECT
     Dosage: UNK
     Route: 065
  3. GABAPENTIN [Suspect]
     Indication: VULVOVAGINAL PAIN
     Dosage: 600 MG, TID
     Route: 065
     Dates: start: 20090101, end: 20110401
  4. AMITRIPTYLINE HCL [Suspect]
     Indication: DEPRESSION
  5. SERTRALINE HYDROCHLORIDE [Suspect]
     Indication: MENTAL DISORDER
     Dosage: UNK
     Route: 065

REACTIONS (4)
  - WITHDRAWAL SYNDROME [None]
  - MATERNAL EXPOSURE BEFORE PREGNANCY [None]
  - PREGNANCY [None]
  - MATERNAL EXPOSURE DURING PREGNANCY [None]
